FAERS Safety Report 16156014 (Version 1)
Quarter: 2019Q2

REPORT INFORMATION
  Report Type: Other
  Country: FR (occurrence: FR)
  Receive Date: 20190404
  Receipt Date: 20190404
  Transmission Date: 20190711
  Serious: Yes (Hospitalization)
  Sender: FDA-Public Use
  Company Number: FR-CELLTRION INC.-2019FR020049

PATIENT

DRUGS (1)
  1. TRUXIMA [Suspect]
     Active Substance: RITUXIMAB-ABBS
     Indication: SJOGREN^S SYNDROME
     Dosage: 1000 MG/CYCLE
     Route: 042
     Dates: start: 20181220, end: 20181220

REACTIONS (7)
  - Oral mucosal erythema [Recovered/Resolved]
  - Urticaria [Recovered/Resolved]
  - Abdominal pain upper [Recovered/Resolved]
  - Laryngeal discomfort [Recovered/Resolved]
  - Product use in unapproved indication [Unknown]
  - Angioedema [Recovered/Resolved]
  - Nausea [Recovered/Resolved]

NARRATIVE: CASE EVENT DATE: 20181220
